FAERS Safety Report 20853633 (Version 1)
Quarter: 2022Q2

REPORT INFORMATION
  Report Type: Spontaneous
  Country: NL (occurrence: NL)
  Receive Date: 20220520
  Receipt Date: 20220520
  Transmission Date: 20220721
  Serious: Yes (Life-Threatening, Hospitalization)
  Sender: FDA-Public Use
  Company Number: None

PATIENT
  Age: 47 Year
  Sex: Female
  Weight: 83 kg

DRUGS (4)
  1. RIZATRIPTAN [Suspect]
     Active Substance: RIZATRIPTAN
     Indication: Migraine
     Dosage: MELTING TABLET  , 3 X PER MONTH 1 PIECE , UNIT DOSE : 3 DF , DURATION : 594 DAYS , RIZATRIPTAN SMELT
     Dates: start: 20130314, end: 20141029
  2. DESOGESTREL\ETHINYL ESTRADIOL [Concomitant]
     Active Substance: DESOGESTREL\ETHINYL ESTRADIOL
     Dosage: 30/150 MCG (MICROGRAM), ETHINYLESTRADIOL/DESOGESTREL TABLET 30/150UG / BRAND NAME NOT SPECIFIED , ST
  3. CANDESARTAN CILEXETIL AND HYDROCHLOROTHIAZIDE [Concomitant]
     Active Substance: CANDESARTAN CILEXETIL\HYDROCHLOROTHIAZIDE
     Dosage: 16/12,5 MG (MILLIGRAM) , CANDESARTAN/HYDROCHLOORTHIAZIDE TABLET 16/12,5MG / BRAND NAME NOT SPECIFIED
  4. DOMPERIDONE [Concomitant]
     Active Substance: DOMPERIDONE
     Dosage: 10 MG (MILLIGRAM) , DOMPERIDON TABLET 10MG / BRAND NAME NOT SPECIFIED , STRENGTH : 10 MG , THERAPY S

REACTIONS (1)
  - Myocardial infarction [Recovered/Resolved]

NARRATIVE: CASE EVENT DATE: 20141029
